FAERS Safety Report 8430768 (Version 3)
Quarter: 2012Q4

REPORT INFORMATION
  Report Type: 
  Country: US (occurrence: US)
  Receive Date: 20120228
  Receipt Date: 20121015
  Transmission Date: 20130627
  Serious: Yes (Hospitalization)
  Sender: FDA-Public Use
  Company Number: US-BAYER-2012-018050

PATIENT
  Age: 42 Year
  Sex: Female
  Weight: 81.63 kg

DRUGS (8)
  1. YASMIN [Suspect]
     Indication: ACNE
     Dosage: UNK
     Dates: start: 200911, end: 201009
  2. YASMIN [Suspect]
     Indication: CONTRACEPTION
  3. YASMIN [Suspect]
     Indication: DYSMENORRHOEA
  4. YASMIN [Suspect]
     Indication: DYSPAREUNIA
  5. YASMIN [Suspect]
     Indication: ENDOMETRIOSIS
  6. OCELLA [Suspect]
     Indication: ACNE
     Dosage: UNK
     Dates: start: 200911, end: 201009
  7. OCELLA [Suspect]
     Indication: CONTRACEPTION
  8. SPIRONOLACTONE [Concomitant]

REACTIONS (2)
  - Deep vein thrombosis [None]
  - Mental disorder [None]
